FAERS Safety Report 19608708 (Version 1)
Quarter: 2021Q3

REPORT INFORMATION
  Report Type: Spontaneous
  Country: US (occurrence: US)
  Receive Date: 20210726
  Receipt Date: 20210726
  Transmission Date: 20211014
  Serious: Yes (Death, Other)
  Sender: FDA-Public Use
  Company Number: US-GLAXOSMITHKLINE-US2021GSK157156

PATIENT
  Sex: Male

DRUGS (8)
  1. ZANTAC [Suspect]
     Active Substance: RANITIDINE HYDROCHLORIDE
     Dosage: 15 MG, 3?4 X PER DAY
     Route: 065
     Dates: start: 198306, end: 198810
  2. RANITIDINE CAPSULE [Suspect]
     Active Substance: RANITIDINE
     Dosage: 75 MG, 3?4 X DAILY
     Route: 065
     Dates: start: 198306, end: 198810
  3. RANITIDINE. [Suspect]
     Active Substance: RANITIDINE
     Dosage: 75 MG, 3?4 X DAILY
     Route: 065
     Dates: start: 198306, end: 198810
  4. RANITIDINE. [Suspect]
     Active Substance: RANITIDINE
     Dosage: 75 MG, 3?4 X DAILY
     Route: 065
     Dates: start: 198306, end: 198810
  5. ZANTAC [Suspect]
     Active Substance: RANITIDINE HYDROCHLORIDE
     Dosage: 15 MG, 3?4 X PER DAY
     Route: 065
     Dates: start: 198306, end: 198810
  6. RANITIDINE. [Suspect]
     Active Substance: RANITIDINE
     Dosage: 75 MG, 3?4 X DAILY
     Route: 065
     Dates: start: 198306, end: 198810
  7. ZANTAC [Suspect]
     Active Substance: RANITIDINE HYDROCHLORIDE
     Dosage: 75 MG, 3?4 X PER DAY
     Route: 065
     Dates: start: 198306, end: 198810
  8. ZANTAC [Suspect]
     Active Substance: RANITIDINE HYDROCHLORIDE
     Dosage: 75 MG, 3?4 X PER DAY
     Route: 065
     Dates: start: 198306, end: 198810

REACTIONS (1)
  - Renal cancer [Fatal]
